FAERS Safety Report 25587933 (Version 2)
Quarter: 2025Q3

REPORT INFORMATION
  Report Type: Report from Study
  Country: CA (occurrence: CA)
  Receive Date: 20250721
  Receipt Date: 20250806
  Transmission Date: 20251020
  Serious: No
  Sender: JOHNSON AND JOHNSON
  Company Number: CA-JNJFOC-20250724342

PATIENT

DRUGS (1)
  1. SIMPONI [Suspect]
     Active Substance: GOLIMUMAB
     Indication: Product used for unknown indication
     Route: 058

REACTIONS (1)
  - Device defective [Unknown]
